FAERS Safety Report 9807516 (Version 1)
Quarter: 2014Q1

REPORT INFORMATION
  Report Type: Spontaneous
  Country: US (occurrence: US)
  Receive Date: 20140110
  Receipt Date: 20140110
  Transmission Date: 20141002
  Serious: No
  Sender: FDA-Public Use
  Company Number: US-SA-2013SA109412

PATIENT
  Age: 76 Year
  Sex: Female

DRUGS (2)
  1. PLAVIX [Suspect]
     Indication: PERIPHERAL ARTERIAL OCCLUSIVE DISEASE
     Route: 065
  2. ALL OTHER THERAPEUTIC PRODUCTS [Concomitant]

REACTIONS (3)
  - Asthenia [Unknown]
  - Gait disturbance [Unknown]
  - Contusion [Unknown]
